FAERS Safety Report 24936717 (Version 1)
Quarter: 2025Q1

REPORT INFORMATION
  Report Type: Spontaneous
  Country: US (occurrence: US)
  Receive Date: 20250206
  Receipt Date: 20250206
  Transmission Date: 20250409
  Serious: No
  Sender: OTSUKA
  Company Number: US-OTSUKA-2024_034116

PATIENT
  Sex: Male

DRUGS (2)
  1. ABILIFY MAINTENA [Suspect]
     Active Substance: ARIPIPRAZOLE
     Indication: Bipolar disorder
     Dosage: 400 MG, QM
     Route: 065
     Dates: end: 202311
  2. ABILIFY ASIMTUFII [Suspect]
     Active Substance: ARIPIPRAZOLE
     Indication: Bipolar disorder
     Route: 065

REACTIONS (1)
  - Akathisia [Recovered/Resolved]
